FAERS Safety Report 4350921-3 (Version None)
Quarter: 2004Q2

REPORT INFORMATION
  Report Type: 
  Country: None (occurrence: None)
  Receive Date: 20040430
  Receipt Date: 20031029
  Transmission Date: 20050107
  Serious: Yes (Death)
  Sender: FDA-Public Use
  Company Number: US-GLAXOSMITHKLINE-B0313893A

PATIENT
  Age: 17 Year
  Sex: Male

DRUGS (3)
  1. BUPROPION HCL [Suspect]
     Route: 048
  2. RISPERIDONE [Suspect]
     Route: 048
  3. SERTRALINE [Suspect]
     Route: 048

REACTIONS (4)
  - CARDIO-RESPIRATORY ARREST [None]
  - COMPLETED SUICIDE [None]
  - CONVULSION [None]
  - OVERDOSE [None]
